FAERS Safety Report 5529948-1 (Version None)
Quarter: 2007Q4

REPORT INFORMATION
  Report Type: 
  Country: None (occurrence: None)
  Receive Date: 20071129
  Receipt Date: 20070920
  Transmission Date: 20080405
  Serious: No
  Sender: FDA-Public Use
  Company Number: US-BOEHRINGER INGELHEIM PHARMACEUTICALS, INC.-2006-BP-09117BP

PATIENT
  Sex: Female

DRUGS (77)
  1. MIRAPEX [Suspect]
     Indication: PARKINSON'S DISEASE
     Route: 048
     Dates: start: 19990504, end: 20031201
  2. SINEMET [Concomitant]
     Indication: PARKINSON'S DISEASE
     Route: 048
     Dates: start: 19940201
  3. SINEMET [Concomitant]
     Dates: start: 20060120
  4. SINEMET [Concomitant]
  5. SINEMET [Concomitant]
  6. OXYGEN [Concomitant]
     Indication: SLEEP APNOEA SYNDROME
     Route: 055
  7. COMTAN [Concomitant]
     Indication: PARKINSON'S DISEASE
     Route: 048
     Dates: start: 20031001
  8. STALEVO 100 [Concomitant]
     Indication: PARKINSON'S DISEASE
     Dates: start: 20040201
  9. STALEVO 100 [Concomitant]
     Dates: start: 20050324
  10. STALEVO 100 [Concomitant]
  11. STALEVO 100 [Concomitant]
     Dates: start: 20051031
  12. TRIAMTERENE [Concomitant]
  13. KLONOPIN [Concomitant]
     Indication: DYSTONIA
     Dates: start: 20040101, end: 20040101
  14. CELEXA [Concomitant]
     Indication: DYSTONIA
  15. SKELAXIN [Concomitant]
  16. MICRO-K [Concomitant]
     Route: 048
  17. LASIX [Concomitant]
     Indication: OEDEMA PERIPHERAL
  18. VIOXX [Concomitant]
  19. ELDEPRYL [Concomitant]
  20. ASCORBIC ACID [Concomitant]
  21. SIMETHICONE [Concomitant]
     Indication: FLATULENCE
  22. SIMETHICONE [Concomitant]
     Indication: DYSPEPSIA
  23. LORTAB [Concomitant]
     Indication: PAIN
  24. COLACE [Concomitant]
  25. ZEASORB [Concomitant]
  26. TAMOXIFEN CITRATE [Concomitant]
     Dates: start: 20010201, end: 20010411
  27. TAMOXIFEN CITRATE [Concomitant]
  28. EXCEDRIN (MIGRAINE) [Concomitant]
  29. PLACEBO OR [FEMERA] [Concomitant]
  30. [PLACEBO] OR FEMERA [Concomitant]
  31. CELEBREX [Concomitant]
     Indication: ARTHRITIS
     Route: 048
  32. CELEBREX [Concomitant]
     Indication: MUSCULOSKELETAL DISCOMFORT
  33. MULTI-VITAMIN [Concomitant]
  34. CALCIUM [Concomitant]
  35. FLEXERIL [Concomitant]
  36. COUMADIN [Concomitant]
  37. BETAMETHASONE [Concomitant]
  38. ZAROXOLYN [Concomitant]
     Dates: start: 20020101
  39. DYAZIDE [Concomitant]
     Route: 048
  40. MIDRIN [Concomitant]
     Indication: HEADACHE
  41. PREMPRO [Concomitant]
  42. NORVASC [Concomitant]
  43. LIPITOR [Concomitant]
  44. ATENOLOL [Concomitant]
  45. FLONASE [Concomitant]
  46. PROZAC [Concomitant]
  47. TOPROL-XL [Concomitant]
  48. ALLEGRA D 24 HOUR [Concomitant]
  49. SYNTHROID [Concomitant]
  50. EFFEXOR XR [Concomitant]
  51. GLUCOTROL XL [Concomitant]
  52. ALBUTEROL [Concomitant]
  53. SINEMET CR [Concomitant]
     Indication: PARKINSON'S DISEASE
     Dates: start: 20010101
  54. SINEMET CR [Concomitant]
     Dates: start: 20011025
  55. EXCEDRIN (MIGRAINE) [Concomitant]
     Indication: MUSCULOSKELETAL DISCOMFORT
  56. COENZYME Q10 [Concomitant]
     Indication: PARKINSON'S DISEASE
     Dates: start: 20050324
  57. DEXAMETHASONE CREAM [Concomitant]
     Route: 061
  58. FIORICET [Concomitant]
     Indication: MIGRAINE
  59. KLOR-CON [Concomitant]
     Dates: start: 20060101
  60. PERCOCET [Concomitant]
     Indication: PAIN
     Route: 048
     Dates: start: 20060111
  61. HYDROCHLOROTHIAZIDE [Concomitant]
     Dates: start: 20000501
  62. RELAFEN [Concomitant]
  63. CALCIUM ACETATE [Concomitant]
  64. ROXICET [Concomitant]
     Indication: PAIN
     Dates: start: 20010401
  65. CARBIDOPA AND LEVODOPA [Concomitant]
     Dates: start: 20010401, end: 20050301
  66. CARBIDOPA AND LEVODOPA [Concomitant]
     Dates: start: 20051108
  67. ECOTRIN [Concomitant]
  68. INVESTIGATIONAL STUDY DRUG (CALGB 49805) [Concomitant]
     Dates: start: 20011025, end: 20020301
  69. OXYCODONE HCL WITH ACETAMINOPHEN [Concomitant]
     Route: 048
     Dates: start: 20011025
  70. TRIAMTERENE AND HYDROCHLOROTHIAZIDE [Concomitant]
  71. TRIMETHYLENE [Concomitant]
     Dates: start: 20011125
  72. CORTISONE INJECTIONS [Concomitant]
     Route: 051
  73. AMANTADINE HCL [Concomitant]
     Dates: start: 20050324
  74. IMITREX [Concomitant]
     Dates: start: 20051108
  75. POTASSIUM CHLORIDE [Concomitant]
     Route: 048
     Dates: start: 20060111
  76. SENNA-S [Concomitant]
     Route: 048
     Dates: start: 20060120
  77. CHEMOTHERAPY [Concomitant]

REACTIONS (3)
  - ANXIETY [None]
  - DEPRESSION [None]
  - PATHOLOGICAL GAMBLING [None]
